FAERS Safety Report 14480150 (Version 2)
Quarter: 2021Q1

REPORT INFORMATION
  Report Type: Spontaneous
  Country: US (occurrence: US)
  Receive Date: 20180202
  Receipt Date: 20210122
  Transmission Date: 20210419
  Serious: Yes (Hospitalization)
  Sender: FDA-Public Use
  Company Number: US-ELI_LILLY_AND_COMPANY-US201801010749

PATIENT
  Sex: Female

DRUGS (1)
  1. HUMALOG [Suspect]
     Active Substance: INSULIN LISPRO
     Indication: BLOOD GLUCOSE INCREASED
     Dosage: UNK, UNKNOWN
     Route: 065

REACTIONS (11)
  - Drug hypersensitivity [Recovered/Resolved]
  - Spider vein [Unknown]
  - Blood glucose increased [Unknown]
  - Blood zinc decreased [Unknown]
  - Thrombosis [Unknown]
  - Blood magnesium decreased [Unknown]
  - Glomerular filtration rate decreased [Unknown]
  - Infection [Unknown]
  - Drug ineffective [Unknown]
  - Road traffic accident [Unknown]
  - Vitamin D decreased [Unknown]

NARRATIVE: CASE EVENT DATE: 2017
